FAERS Safety Report 9829846 (Version 4)
Quarter: 2014Q2

REPORT INFORMATION
  Report Type: Report from Study
  Country: GB (occurrence: GB)
  Receive Date: 20140120
  Receipt Date: 20140403
  Transmission Date: 20141212
  Serious: Yes (Death, Hospitalization, Other)
  Sender: FDA-Public Use
  Company Number: GB-ROCHE-1335392

PATIENT
  Age: 92 Year
  Sex: Female

DRUGS (6)
  1. RANIBIZUMAB [Suspect]
     Indication: PRODUCT USED FOR UNKNOWN INDICATION
     Route: 050
     Dates: start: 20100731
  2. RANIBIZUMAB [Suspect]
     Route: 050
     Dates: start: 20120917
  3. RANIBIZUMAB [Suspect]
     Route: 050
     Dates: start: 20130828
  4. ATORVASTATIN [Concomitant]
     Route: 065
     Dates: start: 20140309
  5. AMLODIPINE [Concomitant]
     Route: 065
     Dates: start: 20140224
  6. CLOPIDOGREL [Concomitant]
     Route: 065
     Dates: start: 20140309

REACTIONS (10)
  - Aortic aneurysm rupture [Fatal]
  - Femoral neck fracture [Fatal]
  - Retinal artery occlusion [Not Recovered/Not Resolved]
  - Retinal oedema [Not Recovered/Not Resolved]
  - Fall [Unknown]
  - Atrial fibrillation [Not Recovered/Not Resolved]
  - Dizziness [Not Recovered/Not Resolved]
  - Aortic aneurysm [Not Recovered/Not Resolved]
  - Myocardial ischaemia [Recovering/Resolving]
  - Haemoglobin decreased [Not Recovered/Not Resolved]
